FAERS Safety Report 7430638-9 (Version None)
Quarter: 2011Q2

REPORT INFORMATION
  Report Type: 
  Country: None (occurrence: None)
  Receive Date: 20110421
  Receipt Date: 20110414
  Transmission Date: 20111010
  Serious: Yes (Other)
  Sender: FDA-Public Use
  Company Number: US-SANOFI-AVENTIS-2011SA023653

PATIENT
  Sex: Male
  Weight: 79.5 kg

DRUGS (17)
  1. METOPROLOL [Concomitant]
     Route: 048
  2. NOVOLOG [Concomitant]
  3. NIACIN [Concomitant]
  4. RANITIDINE [Concomitant]
  5. ISOSORBIDE MONONITRATE [Concomitant]
  6. TYLENOL W/ CODEINE NO. 3 [Concomitant]
  7. ASPIRIN [Concomitant]
  8. TRIAMTERENE AND HYDROCHLOROTHIAZIDE [Concomitant]
     Route: 065
  9. NITROGLYCERIN [Concomitant]
     Indication: CHEST PAIN
  10. PLAVIX [Suspect]
     Route: 048
     Dates: start: 20090801, end: 20110322
  11. LISINOPRIL [Concomitant]
  12. PLAVIX [Suspect]
     Route: 048
     Dates: start: 20090801, end: 20110322
  13. PLAVIX [Suspect]
     Route: 048
     Dates: start: 20090801, end: 20110322
  14. SIMVASTATIN [Concomitant]
  15. LANTUS [Concomitant]
     Dosage: 60-80 MG AS NEEDED
  16. GEMFIBROZIL [Concomitant]
  17. GABAPENTIN [Concomitant]

REACTIONS (5)
  - PERIPHERAL ARTERIAL OCCLUSIVE DISEASE [None]
  - HEADACHE [None]
  - DEVICE OCCLUSION [None]
  - CAROTID ARTERY OCCLUSION [None]
  - BLOOD PRESSURE INCREASED [None]
